FAERS Safety Report 6567922-7 (Version None)
Quarter: 2010Q1

REPORT INFORMATION
  Report Type: 
  Country: None (occurrence: None)
  Receive Date: 20100203
  Receipt Date: 20100126
  Transmission Date: 20100710
  Serious: Yes (Hospitalization)
  Sender: FDA-Public Use
  Company Number: US-JNJFOC-20100107450

PATIENT
  Age: 62 Year
  Sex: Female
  Weight: 108.86 kg

DRUGS (14)
  1. MOTRIN IB [Suspect]
     Route: 048
  2. MOTRIN IB [Suspect]
     Indication: PAIN
     Dosage: AS NEEDED ^FOR YEARS^
     Route: 048
  3. OXYBUTYNIN CHLORIDE [Concomitant]
     Indication: POLLAKIURIA
  4. TRAMADOL HCL [Concomitant]
     Indication: PAIN
  5. ESTRADIOL [Concomitant]
     Indication: HORMONE REPLACEMENT THERAPY
  6. VITAMIN [Concomitant]
     Indication: MEDICAL DIET
  7. SYNTHROID [Concomitant]
     Indication: THYROID DISORDER
  8. OMEPRAZOLE [Concomitant]
     Indication: GASTROOESOPHAGEAL REFLUX DISEASE
  9. FERROUS SULFATE TAB [Concomitant]
     Indication: MEDICAL DIET
  10. MAGNESIUM OXIDE [Concomitant]
     Indication: MUSCLE SPASMS
  11. METOPROLOL SUCCINATE [Concomitant]
     Indication: HYPERTENSION
  12. MICARDIS [Concomitant]
     Indication: CARDIAC DISORDER
  13. NIASPAN [Concomitant]
     Indication: BLOOD CHOLESTEROL INCREASED
  14. VITAMIN C [Concomitant]
     Indication: MEDICAL DIET

REACTIONS (6)
  - ABDOMINAL PAIN UPPER [None]
  - DIARRHOEA [None]
  - GASTRIC HAEMORRHAGE [None]
  - NAUSEA [None]
  - PRODUCT QUALITY ISSUE [None]
  - VOMITING [None]
